FAERS Safety Report 7668028-6 (Version None)
Quarter: 2011Q3

REPORT INFORMATION
  Report Type: 
  Country: None (occurrence: None)
  Receive Date: 20110808
  Receipt Date: 20110728
  Transmission Date: 20111222
  Serious: No
  Sender: FDA-Public Use
  Company Number: US-PFIZER INC-2011177096

PATIENT
  Sex: Female

DRUGS (2)
  1. NIFEDIPINE [Suspect]
     Dosage: 90 MG, DAILY
     Route: 048
     Dates: start: 20110601
  2. ACETYLSALICYLIC ACID [Concomitant]
     Dosage: 81 MG, DAILY

REACTIONS (2)
  - HEADACHE [None]
  - FATIGUE [None]
